FAERS Safety Report 6866110-4 (Version None)
Quarter: 2010Q3

REPORT INFORMATION
  Report Type: 
  Country: None (occurrence: None)
  Receive Date: 20100722
  Receipt Date: 20100713
  Transmission Date: 20110219
  Serious: Yes (Other)
  Sender: FDA-Public Use
  Company Number: US-ELI_LILLY_AND_COMPANY-US201005007677

PATIENT
  Sex: Male
  Weight: 117.1 kg

DRUGS (4)
  1. SOMATROPIN [Suspect]
     Indication: GROWTH HORMONE DEFICIENCY
     Dosage: 0.5 MG, DAILY (1/D)
     Route: 058
     Dates: start: 20031023, end: 20100520
  2. LEVOTHYROXINE SODIUM [Concomitant]
     Indication: HYPOTHYROIDISM
     Dosage: 0.175 MG, UNK
     Dates: start: 20001001
  3. TESTIM [Concomitant]
     Indication: HYPOGONADISM
     Dosage: 10 G, DAILY (1/D)
     Dates: start: 19990601
  4. PREDNISONE [Concomitant]
     Indication: ADRENAL INSUFFICIENCY
     Dates: start: 20010501

REACTIONS (1)
  - PITUITARY TUMOUR RECURRENT [None]
